FAERS Safety Report 21999264 (Version 3)
Quarter: 2024Q3

REPORT INFORMATION
  Report Type: Spontaneous
  Country: ES (occurrence: ES)
  Receive Date: 20230216
  Receipt Date: 20240821
  Transmission Date: 20241016
  Serious: Yes (Other)
  Sender: BRISTOL MYERS SQUIBB
  Company Number: ES-ROCHE-3281785

PATIENT
  Age: 21 Year
  Sex: Male

DRUGS (7)
  1. ABATACEPT [Suspect]
     Active Substance: ABATACEPT
     Indication: Immunodeficiency common variable
  2. CYCLOSPORINE [Suspect]
     Active Substance: CYCLOSPORINE
     Indication: Prophylaxis against transplant rejection
  3. RITUXIMAB [Suspect]
     Active Substance: RITUXIMAB
     Indication: Immunodeficiency common variable
  4. SIROLIMUS [Suspect]
     Active Substance: SIROLIMUS
     Indication: Prophylaxis against transplant rejection
  5. SIROLIMUS [Suspect]
     Active Substance: SIROLIMUS
     Indication: Immunodeficiency common variable
  6. MYCOPHENOLATE MOFETIL [Suspect]
     Active Substance: MYCOPHENOLATE MOFETIL
     Indication: Prophylaxis against transplant rejection
  7. MYCOPHENOLATE MOFETIL [Suspect]
     Active Substance: MYCOPHENOLATE MOFETIL
     Indication: Immunodeficiency common variable

REACTIONS (7)
  - Viral haemorrhagic cystitis [Unknown]
  - COVID-19 [Unknown]
  - Pneumonia [Unknown]
  - Cytomegalovirus infection [Recovered/Resolved]
  - Periorbital infection [Unknown]
  - Adenovirus infection [Unknown]
  - BK virus infection [Unknown]
